FAERS Safety Report 19473976 (Version 3)
Quarter: 2021Q3

REPORT INFORMATION
  Report Type: Report from Study
  Country: DE (occurrence: DE)
  Receive Date: 20210629
  Receipt Date: 20210804
  Transmission Date: 20211014
  Serious: Yes (Hospitalization)
  Sender: FDA-Public Use
  Company Number: NVSC2021DE122908

PATIENT
  Age: 62 Year
  Sex: Male
  Weight: 106 kg

DRUGS (20)
  1. GEVOKIZUMAB [Suspect]
     Active Substance: GEVOKIZUMAB
     Dosage: 120 MG, Q4W
     Route: 042
     Dates: start: 20210706
  2. LEUCOVORIN. [Suspect]
     Active Substance: LEUCOVORIN
     Indication: COLORECTAL CANCER
     Dosage: 400 MG/M2, Q2W
     Route: 041
     Dates: start: 20210429, end: 20210514
  3. METFORMIN [Concomitant]
     Active Substance: METFORMIN HYDROCHLORIDE
     Indication: DIABETES MELLITUS
     Dosage: UNK
     Route: 065
     Dates: start: 20210401
  4. DIMETINDENE [Concomitant]
     Active Substance: DIMETHINDENE
     Indication: PREMEDICATION
     Dosage: UNK
     Route: 065
     Dates: start: 20210514, end: 20210514
  5. HALOPERIDOL. [Concomitant]
     Active Substance: HALOPERIDOL
     Indication: CONFUSIONAL STATE
     Dosage: UNK
     Route: 065
     Dates: start: 20210605, end: 20210605
  6. TAVOR [Concomitant]
     Indication: DEPRESSED LEVEL OF CONSCIOUSNESS
     Dosage: UNK
     Route: 065
     Dates: start: 20210605
  7. BEVACIZUMAB. [Suspect]
     Active Substance: BEVACIZUMAB
     Indication: COLORECTAL CANCER
     Dosage: 5 MG/KG, Q2W
     Route: 042
     Dates: start: 20210429, end: 20210514
  8. OXALIPLATIN. [Suspect]
     Active Substance: OXALIPLATIN
     Indication: COLORECTAL CANCER
     Dosage: 85 MG/M2, Q2W
     Route: 042
     Dates: start: 20210429, end: 20210514
  9. OXALIPLATIN. [Suspect]
     Active Substance: OXALIPLATIN
     Dosage: 63.75 MG/M2, Q2W
     Route: 042
     Dates: start: 20210706
  10. 5?FLUOROURACIL [Suspect]
     Active Substance: FLUOROURACIL
     Indication: COLORECTAL CANCER
     Dosage: 400 MG/M2, Q2W
     Route: 040
     Dates: start: 20210429, end: 20210514
  11. HALOPERIDOL. [Concomitant]
     Active Substance: HALOPERIDOL
     Indication: DEPRESSED LEVEL OF CONSCIOUSNESS
  12. RISPERIDONE. [Concomitant]
     Active Substance: RISPERIDONE
     Indication: DEPRESSED LEVEL OF CONSCIOUSNESS
     Dosage: UNK
     Route: 065
     Dates: start: 20210605
  13. GEVOKIZUMAB [Suspect]
     Active Substance: GEVOKIZUMAB
     Indication: COLORECTAL CANCER
     Dosage: 120 MG, Q4W
     Route: 042
     Dates: start: 20210429, end: 20210429
  14. DEXAMETHASON [Concomitant]
     Active Substance: DEXAMETHASONE
     Indication: BRAIN OEDEMA
     Dosage: UNK
     Route: 065
     Dates: start: 20210531, end: 20210610
  15. LEUCOVORIN. [Suspect]
     Active Substance: LEUCOVORIN
     Dosage: 300 MG/M2, Q2W
     Route: 041
     Dates: start: 20210706
  16. SALINE [Concomitant]
     Active Substance: SODIUM CHLORIDE
     Indication: HYPONATRAEMIA
     Dosage: UNK
     Route: 065
     Dates: start: 20210421
  17. EMEND [Concomitant]
     Active Substance: APREPITANT
     Indication: PREMEDICATION
     Dosage: UNK
     Route: 065
     Dates: start: 20210514, end: 20210514
  18. PANTOZOL [Concomitant]
     Active Substance: PANTOPRAZOLE SODIUM
     Indication: PROPHYLAXIS
     Dosage: UNK
     Route: 065
     Dates: start: 20210601, end: 20210605
  19. 5?FLUOROURACIL [Suspect]
     Active Substance: FLUOROURACIL
     Dosage: 300 MG/M2, Q2W
     Route: 040
     Dates: start: 20210706
  20. KEVATRIL [Concomitant]
     Active Substance: GRANISETRON HYDROCHLORIDE
     Indication: PREMEDICATION
     Dosage: UNK
     Route: 065
     Dates: start: 20210514, end: 20210514

REACTIONS (1)
  - Cerebrovascular accident [Recovering/Resolving]

NARRATIVE: CASE EVENT DATE: 20210531
